FAERS Safety Report 12783927 (Version 1)
Quarter: 2016Q3

REPORT INFORMATION
  Report Type: Spontaneous
  Country: IT (occurrence: IT)
  Receive Date: 20160927
  Receipt Date: 20160927
  Transmission Date: 20161109
  Serious: Yes (Other)
  Sender: FDA-Public Use
  Company Number: IT-BAYER-2016-181567

PATIENT
  Age: 33 Year
  Sex: Female

DRUGS (8)
  1. CYCLOSPORINE. [Suspect]
     Active Substance: CYCLOSPORINE
     Indication: COGAN^S SYNDROME
     Dosage: 300 MG, WEEKLY
     Dates: start: 2007
  2. AZATHIOPRINE. [Suspect]
     Active Substance: AZATHIOPRINE
     Indication: COGAN^S SYNDROME
     Dosage: 400 MG, WEEKLY
  3. PREDNISONE. [Suspect]
     Active Substance: PREDNISONE
     Indication: COGAN^S SYNDROME
     Dosage: 15 MG, WEEKLY
  4. AZATHIOPRINE. [Suspect]
     Active Substance: AZATHIOPRINE
     Indication: COGAN^S SYNDROME
     Dosage: 200 MG, WEEKLY
     Dates: start: 2009
  5. PREDNISONE. [Suspect]
     Active Substance: PREDNISONE
     Indication: COGAN^S SYNDROME
     Dosage: 20 MG, WEEKLY
  6. CYCLOSPORINE. [Suspect]
     Active Substance: CYCLOSPORINE
     Indication: COGAN^S SYNDROME
     Dosage: 450 MG, WEEKLY
  7. PREDNISONE. [Suspect]
     Active Substance: PREDNISONE
     Indication: COGAN^S SYNDROME
     Dosage: 40 MG, QD
  8. ACETYLSALICYLIC ACID({=100 MG) [Suspect]
     Active Substance: ASPIRIN
     Indication: COGAN^S SYNDROME
     Dosage: 100 MG/D, UNK
     Route: 048
     Dates: start: 2007

REACTIONS (4)
  - Placental necrosis [None]
  - Maternal exposure during pregnancy [Recovered/Resolved]
  - Breech presentation [Recovered/Resolved]
  - Off label use [None]

NARRATIVE: CASE EVENT DATE: 2011
